FAERS Safety Report 14892739 (Version 1)
Quarter: 2018Q2

REPORT INFORMATION
  Report Type: Spontaneous
  Country: US (occurrence: US)
  Receive Date: 20180514
  Receipt Date: 20180514
  Transmission Date: 20180711
  Serious: No
  Sender: FDA-Public Use
  Company Number: US-PFIZER INC-2018194588

PATIENT
  Age: 37 Year
  Sex: Male

DRUGS (1)
  1. XELJANZ XR [Suspect]
     Active Substance: TOFACITINIB CITRATE
     Dosage: 11 MG, DAILY

REACTIONS (8)
  - Musculoskeletal stiffness [Unknown]
  - Crepitations [Unknown]
  - Blood cholesterol increased [Unknown]
  - Joint stiffness [Unknown]
  - Arthralgia [Unknown]
  - Low density lipoprotein increased [Unknown]
  - Inadequate diet [Unknown]
  - Acne [Unknown]
